FAERS Safety Report 4417342-6 (Version None)
Quarter: 2004Q3

REPORT INFORMATION
  Report Type: 
  Country: None (occurrence: None)
  Receive Date: 20040806
  Receipt Date: 20040727
  Transmission Date: 20050211
  Serious: Yes (Other)
  Sender: FDA-Public Use
  Company Number: GB-GLAXOSMITHKLINE-B0340784A

PATIENT
  Age: 84 Year
  Sex: Female
  Weight: 73 kg

DRUGS (3)
  1. AVANDIA [Suspect]
     Indication: DIABETES MELLITUS
     Dosage: 4MG PER DAY
     Route: 048
     Dates: start: 20031120, end: 20040611
  2. CAMCOLIT [Suspect]
     Indication: BIPOLAR DISORDER
     Dosage: 600MG PER DAY
     Route: 048
     Dates: start: 19750101
  3. DOTHIEPIN HYDROCHLORIDE [Concomitant]
     Indication: BIPOLAR DISORDER
     Dosage: 75MG PER DAY
     Route: 048
     Dates: start: 19750101

REACTIONS (2)
  - DRUG INTERACTION [None]
  - DRUG LEVEL DECREASED [None]
